FAERS Safety Report 4817101-6 (Version None)
Quarter: 2005Q4

REPORT INFORMATION
  Report Type: 
  Country: None (occurrence: None)
  Receive Date: 20051101
  Receipt Date: 20051025
  Transmission Date: 20060501
  Serious: Yes (Death)
  Sender: FDA-Public Use
  Company Number: PHBS2005EG15691

PATIENT
  Age: 76 Year
  Sex: Male
  Weight: 80 kg

DRUGS (4)
  1. ZOMETA [Suspect]
     Indication: PROSTATE CANCER
     Dosage: 4 MG, ONCE/SINGLE
     Route: 042
  2. HORMONES [Concomitant]
     Indication: PROSTATE CANCER
     Route: 065
  3. RADIOTHERAPY [Concomitant]
     Route: 065
  4. ANDROCUR [Concomitant]

REACTIONS (5)
  - CHILLS [None]
  - DEATH [None]
  - FATIGUE [None]
  - HYPOTONIA [None]
  - PYREXIA [None]
